FAERS Safety Report 22625706 (Version 3)
Quarter: 2023Q2

REPORT INFORMATION
  Report Type: Spontaneous
  Country: US (occurrence: US)
  Receive Date: 20230621
  Receipt Date: 20230628
  Transmission Date: 20230722
  Serious: Yes (Other)
  Sender: FDA-Public Use
  Company Number: US-PFIZER INC-202300223816

PATIENT
  Sex: Female
  Weight: 95.25 kg

DRUGS (2)
  1. MISOPROSTOL [Suspect]
     Active Substance: MISOPROSTOL
     Indication: Abortion
     Dosage: UNK (4 PILLS, DOSE UNKNOWN)
  2. SYNTHROID [Concomitant]
     Active Substance: LEVOTHYROXINE SODIUM
     Indication: Thyroid disorder
     Dosage: 25 UG, DAILY

REACTIONS (10)
  - Abortion induced [Unknown]
  - Uterine haemorrhage [Unknown]
  - Malaise [Unknown]
  - Dizziness [Unknown]
  - Nausea [Unknown]
  - Anaemia [Unknown]
  - Post procedural urine leak [Unknown]
  - Menstrual disorder [Unknown]
  - Drug ineffective for unapproved indication [Unknown]
  - Off label use [Unknown]
